FAERS Safety Report 5100293-1 (Version None)
Quarter: 2006Q3

REPORT INFORMATION
  Report Type: 
  Country: None (occurrence: None)
  Receive Date: 20060731
  Receipt Date: 20060516
  Transmission Date: 20061208
  Serious: No
  Sender: FDA-Public Use
  Company Number: 2006PV013958

PATIENT
  Age: 69 Year
  Sex: Female
  Weight: 99.7913 kg

DRUGS (2)
  1. BYETTA [Suspect]
     Indication: DIABETES MELLITUS NON-INSULIN-DEPENDENT
     Dosage: SEE IMAGE
     Route: 058
     Dates: start: 20060516
  2. GLUCOPHAGE [Concomitant]

REACTIONS (4)
  - BLOOD GLUCOSE INCREASED [None]
  - BOWEL SOUNDS ABNORMAL [None]
  - DIARRHOEA [None]
  - WEIGHT DECREASED [None]
